FAERS Safety Report 9802964 (Version 1)
Quarter: 2014Q1

REPORT INFORMATION
  Report Type: Spontaneous
  Country: FR (occurrence: None)
  Receive Date: 20140102
  Receipt Date: 20140102
  Transmission Date: 20141002
  Serious: Yes (Hospitalization)
  Sender: FDA-Public Use
  Company Number: 1970039

PATIENT
  Age: 61 Year
  Sex: Female

DRUGS (6)
  1. CARBOPLATIN [Suspect]
     Indication: PRODUCT USED FOR UNKNOWN INDICATION
     Route: 042
     Dates: start: 20110524, end: 20110524
  2. PACLITAXEL EBEWE [Concomitant]
  3. METHYLPREDNISOLONE MERCK [Concomitant]
  4. POLARAMINE [Concomitant]
  5. ZOPHREN [Concomitant]
  6. AZANTAC [Concomitant]

REACTIONS (4)
  - Burning sensation [None]
  - Nausea [None]
  - Sense of oppression [None]
  - Chest discomfort [None]
